FAERS Safety Report 21294471 (Version 3)
Quarter: 2022Q4

REPORT INFORMATION
  Report Type: Report from Study
  Country: US (occurrence: US)
  Receive Date: 20220905
  Receipt Date: 20221215
  Transmission Date: 20230113
  Serious: No
  Sender: FDA-Public Use
  Company Number: US-BIOVITRUM-2022US05234

PATIENT
  Age: 54 Year
  Sex: Female

DRUGS (2)
  1. KINERET [Suspect]
     Active Substance: ANAKINRA
     Indication: Pyrexia
     Dates: start: 20190405
  2. KINERET [Suspect]
     Active Substance: ANAKINRA
     Dates: start: 20190402

REACTIONS (10)
  - Illness [Unknown]
  - Sinusitis [Unknown]
  - Multiple allergies [Unknown]
  - Arthralgia [Unknown]
  - Fatigue [Unknown]
  - Pyrexia [Unknown]
  - Peripheral swelling [Unknown]
  - Pain in extremity [Unknown]
  - Product dose omission issue [Unknown]
  - Off label use [Unknown]

NARRATIVE: CASE EVENT DATE: 20190405
